FAERS Safety Report 5269866-X (Version None)
Quarter: 2007Q1

REPORT INFORMATION
  Report Type: 
  Country: None (occurrence: None)
  Receive Date: 20061218
  Receipt Date: 20060731
  Transmission Date: 20070707
  Serious: Yes (Hospitalization)
  Sender: FDA-Public Use
  Company Number: US200608000229

PATIENT
  Sex: Female

DRUGS (1)
  1. HUMALOG [Suspect]
     Indication: DIABETES MELLITUS
     Dosage: SUB PUMP

REACTIONS (8)
  - BLOOD GLUCOSE INCREASED [None]
  - BLOOD KETONE BODY [None]
  - BLOOD POTASSIUM DECREASED [None]
  - HYPERGLYCAEMIA [None]
  - KETONURIA [None]
  - KETOSIS [None]
  - MALAISE [None]
  - VOMITING [None]
